FAERS Safety Report 9279066 (Version 4)
Quarter: 2013Q3

REPORT INFORMATION
  Report Type: Report from Study
  Country: US (occurrence: US)
  Receive Date: 20130508
  Receipt Date: 20130925
  Transmission Date: 20140515
  Serious: Yes (Other)
  Sender: FDA-Public Use
  Company Number: PHEH2013US009430

PATIENT
  Sex: Female

DRUGS (11)
  1. TEGRETOL [Suspect]
     Indication: PAIN IN JAW
     Dosage: 200 MG, TID
  2. TEGRETOL [Suspect]
     Dosage: 400 MG, TID
  3. EPITOL [Suspect]
     Indication: PAIN IN JAW
     Dosage: 200 MG, THREE TIMES A DAY
  4. TRIPTYLINE [Concomitant]
     Indication: PAIN IN JAW
     Dosage: UNK UKN, UNK
  5. HYDROCODONE [Concomitant]
     Dosage: UNK UKN, UNK
  6. CLONIDINE [Concomitant]
     Dosage: UNK UKN, UNK
  7. LISINOPRIL [Concomitant]
     Dosage: UNK UKN, UNK
  8. NORVASC [Concomitant]
     Dosage: UNK UKN, UNK
  9. VITAMIN B 12 [Concomitant]
     Dosage: UNK UKN, UNK
  10. VITAMIN D3 [Concomitant]
     Dosage: UNK UKN, UNK
  11. MOTRIN [Concomitant]
     Dosage: UNK UKN, UNK

REACTIONS (12)
  - Dementia Alzheimer^s type [Unknown]
  - Amnesia [Unknown]
  - Temporomandibular joint syndrome [Unknown]
  - Neuralgia [Unknown]
  - Stress [Unknown]
  - Blood glucose increased [Unknown]
  - Pain in extremity [Unknown]
  - Fibromyalgia [Unknown]
  - Pain [Unknown]
  - Incorrect dose administered [Unknown]
  - Pain in jaw [Unknown]
  - Drug ineffective [Unknown]
